FAERS Safety Report 9970071 (Version 2)
Quarter: 2014Q1

REPORT INFORMATION
  Report Type: Spontaneous
  Country: US (occurrence: US)
  Receive Date: 20140306
  Receipt Date: 20140327
  Transmission Date: 20141002
  Serious: Yes (Life-Threatening)
  Sender: FDA-Public Use
  Company Number: US-ASTRAZENECA-2014SE14232

PATIENT
  Age: 25729 Day
  Sex: Female
  Weight: 149.7 kg

DRUGS (4)
  1. SYMBICORT [Suspect]
     Indication: CHRONIC OBSTRUCTIVE PULMONARY DISEASE
     Dosage: 160 4.5 MCG UNK
     Route: 055
     Dates: start: 201402, end: 201402
  2. PREVACID [Concomitant]
     Indication: GASTROOESOPHAGEAL REFLUX DISEASE
  3. METFORMIN [Concomitant]
     Indication: DIABETES MELLITUS
  4. FUROSEMIDE [Concomitant]
     Indication: OEDEMA

REACTIONS (2)
  - Presyncope [Recovered/Resolved]
  - Atrial fibrillation [Recovered/Resolved]
